FAERS Safety Report 4999455-3 (Version None)
Quarter: 2006Q2

REPORT INFORMATION
  Report Type: 
  Country: None (occurrence: None)
  Receive Date: 20060509
  Receipt Date: 20060509
  Transmission Date: 20061013
  Serious: No
  Sender: FDA-Public Use
  Company Number: None

PATIENT
  Age: 46 Year
  Sex: Male

DRUGS (2)
  1. HALOPERIDOL [Suspect]
     Indication: AGITATION
     Dosage: 2.5 MG IV X 1
     Route: 042
     Dates: start: 20051004
  2. PHENYTOIN (HOME MEDICATION) [Concomitant]

REACTIONS (1)
  - CONVULSION [None]
